FAERS Safety Report 9321122 (Version 1)
Quarter: 2013Q2

REPORT INFORMATION
  Report Type: Spontaneous
  Country: US (occurrence: US)
  Receive Date: 20130531
  Receipt Date: 20130531
  Transmission Date: 20140414
  Serious: Yes (Other)
  Sender: FDA-Public Use
  Company Number: US-EISAI INC-E3810-06462-SPO-US

PATIENT
  Sex: Female

DRUGS (12)
  1. ACIPHEX (RABEPRAZOLE) [Suspect]
     Indication: PRODUCT USED FOR UNKNOWN INDICATION
     Dosage: UNKNOWN
     Route: 048
  2. LEVETIRACETAM [Concomitant]
     Indication: PRODUCT USED FOR UNKNOWN INDICATION
  3. ARIMIDEX [Concomitant]
  4. CITALOPRAM [Concomitant]
  5. ASPIRIN [Concomitant]
  6. SPIRIVA [Concomitant]
  7. METOPROLOL TARTRATE [Concomitant]
  8. TRAZADONE [Concomitant]
  9. PROVENTIL [Concomitant]
  10. CELEBREX [Concomitant]
  11. LISINOPRIL [Concomitant]
  12. ADVAIR [Concomitant]
     Dosage: 500/50

REACTIONS (22)
  - Cachexia [Unknown]
  - Poisoning [Unknown]
  - Toxicity to various agents [Unknown]
  - Malaise [Unknown]
  - Abdominal distension [Unknown]
  - Dry eye [Unknown]
  - Gastroenteritis [Unknown]
  - Thirst [Unknown]
  - Weight decreased [Unknown]
  - Bone pain [Unknown]
  - Muscle spasms [Unknown]
  - Asthenia [Unknown]
  - Pyrexia [Unknown]
  - Nausea [Unknown]
  - Depression [Unknown]
  - Insomnia [Unknown]
  - Dizziness [Unknown]
  - Dry mouth [Unknown]
  - Headache [Unknown]
  - Constipation [Unknown]
  - Myalgia [Unknown]
  - Abdominal pain [Unknown]
